FAERS Safety Report 8150775-3 (Version None)
Quarter: 2012Q1

REPORT INFORMATION
  Report Type: 
  Country: None (occurrence: None)
  Receive Date: 20120220
  Receipt Date: 20120214
  Transmission Date: 20120608
  Serious: Yes (Other)
  Sender: FDA-Public Use
  Company Number: US-BAYER-201028261NA

PATIENT
  Age: 66 Year
  Sex: Male
  Weight: 90 kg

DRUGS (17)
  1. DOPAMINE HCL [Concomitant]
     Dosage: 5 MCG/KG/MIN
  2. PROTAMINE SULFATE [Concomitant]
  3. PANCURONIUM BROMIDE [Concomitant]
  4. NITROGLYCERIN [Concomitant]
  5. LOVENOX [Concomitant]
     Dosage: 90 MG, BID
     Route: 058
  6. TRASYLOL [Suspect]
  7. EPINEPHRINE [Concomitant]
     Dosage: 0.1MCG/KG/MIN
  8. ISOFLURANE [Concomitant]
  9. TRASYLOL [Suspect]
     Indication: CORONARY ARTERY BYPASS
     Dosage: LOADING DOSE - 2 MIL KIU FOLLOWED BY 50,000U/HR
     Route: 042
     Dates: start: 20040513, end: 20040513
  10. DIOVAN HCT [Concomitant]
     Dosage: 80/12.5, QD
     Route: 048
  11. ASPIRIN [Concomitant]
     Dosage: 325 MG, QD
     Route: 048
  12. LOPRESSOR [Concomitant]
     Dosage: 25 MG, BID
     Route: 048
  13. HEPARIN [Concomitant]
  14. PROTONIX [Concomitant]
     Dosage: 40 MG, QD
  15. CARDIOPLEGIA [Concomitant]
     Dosage: 1250 CC
  16. CALCIUM CHLORIDE [Concomitant]
  17. VERSED [Concomitant]

REACTIONS (14)
  - NERVOUSNESS [None]
  - DEPRESSION [None]
  - STRESS [None]
  - RENAL INJURY [None]
  - RENAL DISORDER [None]
  - FEAR [None]
  - MYOCARDIAL INFARCTION [None]
  - INJURY [None]
  - RENAL IMPAIRMENT [None]
  - EMOTIONAL DISTRESS [None]
  - PAIN [None]
  - RENAL FAILURE [None]
  - ANXIETY [None]
  - ANHEDONIA [None]
